FAERS Safety Report 11281529 (Version 1)
Quarter: 2015Q3

REPORT INFORMATION
  Report Type: Spontaneous
  Country: US (occurrence: US)
  Receive Date: 20150717
  Receipt Date: 20150717
  Transmission Date: 20151125
  Serious: No
  Sender: FDA-Public Use
  Company Number: US-ASTRAZENECA-2013SE66741

PATIENT
  Age: 69 Year
  Sex: Female
  Weight: 65.8 kg

DRUGS (14)
  1. TRICOR [Concomitant]
     Active Substance: FENOFIBRATE
  2. DIGOXIN. [Concomitant]
     Active Substance: DIGOXIN
  3. VITAMINS [Concomitant]
     Active Substance: VITAMINS
  4. FOLIC ACID. [Concomitant]
     Active Substance: FOLIC ACID
  5. CELEBREX [Concomitant]
     Active Substance: CELECOXIB
  6. CALCIUM [Concomitant]
     Active Substance: CALCIUM
  7. ALENDRONATE [Concomitant]
     Active Substance: ALENDRONATE SODIUM
  8. METFORMIN [Concomitant]
     Active Substance: METFORMIN HYDROCHLORIDE
     Indication: TYPE 2 DIABETES MELLITUS
     Dosage: 1000MG ONCE OR TWICE A DAY
     Route: 048
  9. FISH OIL [Concomitant]
     Active Substance: FISH OIL
     Indication: ANTICOAGULANT THERAPY
     Route: 048
  10. VITAMIN D [Concomitant]
     Active Substance: CHOLECALCIFEROL
  11. BLOOD PRESSURE MEDICATIONS [Concomitant]
     Active Substance: UNSPECIFIED INGREDIENT
  12. LIPITOR [Concomitant]
     Active Substance: ATORVASTATIN CALCIUM
  13. BYDUREON [Suspect]
     Active Substance: EXENATIDE
     Indication: TYPE 2 DIABETES MELLITUS
     Route: 058
     Dates: start: 2013
  14. ASPIRIN. [Concomitant]
     Active Substance: ASPIRIN

REACTIONS (4)
  - Injection site haemorrhage [Recovered/Resolved]
  - Injection site mass [Unknown]
  - Injection site pain [Recovered/Resolved]
  - Fatigue [Unknown]
